FAERS Safety Report 6857906-3 (Version None)
Quarter: 2010Q3

REPORT INFORMATION
  Report Type: 
  Country: None (occurrence: None)
  Receive Date: 20100715
  Receipt Date: 20100706
  Transmission Date: 20110219
  Serious: Yes (Death, Hospitalization)
  Sender: FDA-Public Use
  Company Number: 2010070021

PATIENT
  Age: 62 Year
  Sex: Male

DRUGS (5)
  1. ONSOLIS [Suspect]
     Indication: CANCER PAIN
     Dosage: 800 MCG (200 MCG, 4 IN 1 D), BU
     Route: 002
     Dates: start: 20100625
  2. FENTANYL-100 [Concomitant]
  3. ZOFRAN [Concomitant]
  4. PROTONIX [Concomitant]
  5. OXYCODONE [Concomitant]

REACTIONS (1)
  - MALIGNANT NEOPLASM PROGRESSION [None]
